FAERS Safety Report 22151741 (Version 16)
Quarter: 2024Q1

REPORT INFORMATION
  Report Type: Spontaneous
  Country: CA (occurrence: CA)
  Receive Date: 20230329
  Receipt Date: 20240328
  Transmission Date: 20240410
  Serious: Yes (Other)
  Sender: FDA-Public Use
  Company Number: CA-CELLTRION INC.-2022CA016723

PATIENT

DRUGS (32)
  1. INFLECTRA [Suspect]
     Active Substance: INFLIXIMAB-DYYB
     Indication: Crohn^s disease
     Dosage: 10 MG/KG, 0, 2, 6 WEEKS, HOSPITAL START
     Route: 042
     Dates: start: 20220919
  2. INFLECTRA [Suspect]
     Active Substance: INFLIXIMAB-DYYB
     Dosage: 10 MG/KG, W0, W2, W6 AND Q 6 WEEKS
     Route: 042
     Dates: start: 20221031
  3. INFLECTRA [Suspect]
     Active Substance: INFLIXIMAB-DYYB
     Dosage: 10 MG/KG, EVERY 4 WEEKS
     Route: 042
     Dates: start: 20221129
  4. INFLECTRA [Suspect]
     Active Substance: INFLIXIMAB-DYYB
     Dosage: 10 MG/KG, EVERY 4 WEEKS
     Route: 042
     Dates: start: 20221229
  5. INFLECTRA [Suspect]
     Active Substance: INFLIXIMAB-DYYB
     Dosage: 10 MG/KG, EVERY 4 WEEKS
     Route: 042
     Dates: start: 20221229
  6. INFLECTRA [Suspect]
     Active Substance: INFLIXIMAB-DYYB
     Dosage: 550 MG (10 MG/KG), EVERY 4 WEEKS
     Route: 042
     Dates: start: 20230125
  7. INFLECTRA [Suspect]
     Active Substance: INFLIXIMAB-DYYB
     Dosage: 550 MG (10 MG/KG), EVERY 4 WEEKS
     Route: 042
     Dates: start: 20230221
  8. INFLECTRA [Suspect]
     Active Substance: INFLIXIMAB-DYYB
     Dosage: 540 MG (10 MG/KG), EVERY 4 WEEKS
     Route: 042
     Dates: start: 20230321
  9. INFLECTRA [Suspect]
     Active Substance: INFLIXIMAB-DYYB
     Dosage: 540 MG (10 MG/KG), EVERY 4 WEEKS
     Route: 042
     Dates: start: 20230418
  10. INFLECTRA [Suspect]
     Active Substance: INFLIXIMAB-DYYB
     Dosage: 530 MG (10 MG/KG), EVERY 4 WEEKS
     Route: 042
     Dates: start: 20230516
  11. INFLECTRA [Suspect]
     Active Substance: INFLIXIMAB-DYYB
     Dosage: 510 MG (10 MG/KG), EVERY 4 WEEKS
     Route: 042
     Dates: start: 20230613
  12. INFLECTRA [Suspect]
     Active Substance: INFLIXIMAB-DYYB
     Dosage: 10 MG/KG, EVERY 4 WEEKS
     Route: 042
     Dates: start: 20230711
  13. INFLECTRA [Suspect]
     Active Substance: INFLIXIMAB-DYYB
     Dosage: 530 MG (10 MG/KG), EVERY 4 WEEKS
     Route: 042
     Dates: start: 20230808
  14. INFLECTRA [Suspect]
     Active Substance: INFLIXIMAB-DYYB
     Dosage: 10 MG/KG, EVERY 4 WEEKS
     Route: 042
     Dates: start: 20230908
  15. INFLECTRA [Suspect]
     Active Substance: INFLIXIMAB-DYYB
     Dosage: 540 MG (10 MG/KG), EVERY 4 WEEKS
     Route: 042
     Dates: start: 20231006
  16. INFLECTRA [Suspect]
     Active Substance: INFLIXIMAB-DYYB
     Dosage: 550 MG, EVERY 4 WEEKS
     Route: 042
     Dates: start: 20231103, end: 20231103
  17. INFLECTRA [Suspect]
     Active Substance: INFLIXIMAB-DYYB
     Dosage: 550 MG, EVERY 4 WEEKS
     Route: 042
     Dates: start: 20231103, end: 20231103
  18. INFLECTRA [Suspect]
     Active Substance: INFLIXIMAB-DYYB
     Dosage: 560 MG (10 MG/KG), EVERY 4 WEEKS
     Route: 042
     Dates: start: 20231201
  19. INFLECTRA [Suspect]
     Active Substance: INFLIXIMAB-DYYB
     Dosage: 570 MG (10 MG/KG), AFTER 5 WEEKS (EVERY 4 WEEKS)
     Route: 042
     Dates: start: 20240105
  20. INFLECTRA [Suspect]
     Active Substance: INFLIXIMAB-DYYB
     Dosage: 570 MG (10 MG/KG), EVERY 4 WEEKS
     Route: 042
     Dates: start: 20240202
  21. INFLECTRA [Suspect]
     Active Substance: INFLIXIMAB-DYYB
     Dosage: 560 MG (10 MG/KG), AFTER 3 WEEKS AND 5 DAYS (EVERY 4 WEEKS)
     Route: 042
     Dates: start: 20240228, end: 20240228
  22. INFLECTRA [Suspect]
     Active Substance: INFLIXIMAB-DYYB
     Dosage: 560 MG (10 MG/KG), AFTER 3 WEEKS AND 5 DAYS (EVERY 4 WEEKS)
     Route: 042
     Dates: start: 20240228, end: 20240228
  23. CENTRUM JR [MINERALS NOS;VITAMINS NOS] [Concomitant]
     Dosage: UNK
  24. FENTANYL [Concomitant]
     Active Substance: FENTANYL\FENTANYL CITRATE
     Indication: Back pain
     Dosage: 1 DF
     Route: 065
  25. PREDNISONE [Concomitant]
     Active Substance: PREDNISONE
     Dosage: 80 MG
     Route: 065
     Dates: start: 20220921
  26. PREVACID [Concomitant]
     Active Substance: LANSOPRAZOLE
     Dosage: UNK
  27. SKYRIZI [Concomitant]
     Active Substance: RISANKIZUMAB-RZAA
     Dosage: UNK
  28. SOLU-MEDROL [Concomitant]
     Active Substance: METHYLPREDNISOLONE SODIUM SUCCINATE
     Dosage: UNK
     Route: 042
  29. PIPERACILLIN SODIUM\TAZOBACTAM SODIUM [Concomitant]
     Active Substance: PIPERACILLIN SODIUM\TAZOBACTAM SODIUM
     Dosage: UNK
  30. VENOFER [Concomitant]
     Active Substance: IRON SUCROSE
     Dosage: UNK
  31. VITAMIN B12 [Concomitant]
     Active Substance: CYANOCOBALAMIN
     Dosage: UNK
  32. CHOLECALCIFEROL [Concomitant]
     Active Substance: CHOLECALCIFEROL
     Dosage: UNK

REACTIONS (17)
  - Condition aggravated [Recovering/Resolving]
  - Abdominal pain [Not Recovered/Not Resolved]
  - Diarrhoea [Not Recovered/Not Resolved]
  - Decreased appetite [Not Recovered/Not Resolved]
  - Drug ineffective [Unknown]
  - Therapeutic product effect incomplete [Unknown]
  - Condition aggravated [Recovered/Resolved]
  - Rhinorrhoea [Recovering/Resolving]
  - Arthralgia [Recovered/Resolved]
  - Nasopharyngitis [Recovering/Resolving]
  - Headache [Not Recovered/Not Resolved]
  - Back pain [Not Recovered/Not Resolved]
  - Faecal calprotectin increased [Not Recovered/Not Resolved]
  - Influenza [Recovered/Resolved]
  - Off label use [Unknown]
  - Off label use [Unknown]
  - Intentional product use issue [Unknown]

NARRATIVE: CASE EVENT DATE: 20221031
